FAERS Safety Report 11115210 (Version 1)
Quarter: 2015Q2

REPORT INFORMATION
  Report Type: Spontaneous
  Country: US (occurrence: None)
  Receive Date: 20150514
  Receipt Date: 20150514
  Transmission Date: 20150821
  Serious: Yes (Other)
  Sender: FDA-Public Use
  Company Number: None

PATIENT
  Age: 35 Year
  Sex: Female
  Weight: 64.86 kg

DRUGS (11)
  1. BOTOX [Suspect]
     Active Substance: ONABOTULINUMTOXINA
     Indication: MIGRAINE
     Dosage: INJECTED : UNKNOWN AMOUNT?EVERT 3 MONTHS?INTO THE MUSCLE
     Route: 030
     Dates: start: 201402, end: 201502
  2. IRON [Concomitant]
     Active Substance: IRON
  3. IGG SUPPORT [Concomitant]
  4. 5 HTP [Concomitant]
  5. VITAMIN D [Concomitant]
     Active Substance: CHOLECALCIFEROL
  6. OMEGA 3 FISH OILS [Concomitant]
  7. TRAZODONE [Concomitant]
     Active Substance: TRAZODONE HYDROCHLORIDE
  8. MAGNESIUM [Concomitant]
     Active Substance: MAGNESIUM
  9. PRENATAL VITAMIN [Concomitant]
     Active Substance: VITAMINS
  10. SOMA [Concomitant]
     Active Substance: CARISOPRODOL
  11. NORCO [Concomitant]
     Active Substance: ACETAMINOPHEN\HYDROCODONE BITARTRATE

REACTIONS (19)
  - Influenza like illness [None]
  - Abdominal pain upper [None]
  - Dyspnoea [None]
  - Depression [None]
  - Insomnia [None]
  - Polymenorrhoea [None]
  - Chest pain [None]
  - Asthenia [None]
  - Muscle tightness [None]
  - Muscle spasms [None]
  - Speech disorder [None]
  - Anxiety [None]
  - Bladder disorder [None]
  - Dysphagia [None]
  - Presyncope [None]
  - Hyperhidrosis [None]
  - Thinking abnormal [None]
  - Nausea [None]
  - Pyrexia [None]

NARRATIVE: CASE EVENT DATE: 20150227
